FAERS Safety Report 5653606-6 (Version None)
Quarter: 2008Q1

REPORT INFORMATION
  Report Type: 
  Country: None (occurrence: None)
  Receive Date: 20080306
  Receipt Date: 20080225
  Transmission Date: 20080703
  Serious: Yes (Hospitalization)
  Sender: FDA-Public Use
  Company Number: GB-ROCHE-549421

PATIENT
  Sex: Female
  Weight: 92 kg

DRUGS (5)
  1. ORLISTAT [Suspect]
     Indication: OBESITY
     Route: 048
     Dates: start: 20071026, end: 20080215
  2. BISOPROLOL FUMARATE [Concomitant]
     Indication: HYPERTENSION
     Route: 048
  3. ASPIRIN [Concomitant]
     Route: 048
  4. MELOXICAM [Concomitant]
     Indication: ARTHRITIS
     Route: 048
  5. HYDROXYCHLOROQUINE SULFATE [Concomitant]
     Indication: ARTHRITIS
     Route: 048

REACTIONS (3)
  - ABDOMINAL PAIN [None]
  - ILL-DEFINED DISORDER [None]
  - PYREXIA [None]
